FAERS Safety Report 5352699-3 (Version None)
Quarter: 2007Q2

REPORT INFORMATION
  Report Type: 
  Country: None (occurrence: None)
  Receive Date: 20070611
  Receipt Date: 20070531
  Transmission Date: 20071010
  Serious: Yes (Hospitalization, Other)
  Sender: FDA-Public Use
  Company Number: DE-JNJFOC-20070500925

PATIENT
  Sex: Female
  Weight: 52 kg

DRUGS (1)
  1. ORTHOCLONE OKT3 [Suspect]
     Indication: TRANSPLANT REJECTION
     Dosage: THE PATIENT RECEIVED 4 APPLICATIONS OF ORTHOCLONE IN TOTAL, THE LAST ONE ON 02-MAY-07
     Route: 065

REACTIONS (7)
  - ASCITES [None]
  - CAPILLARY LEAK SYNDROME [None]
  - CONVULSION [None]
  - ILEUS [None]
  - NAUSEA [None]
  - RESPIRATORY FAILURE [None]
  - TACHYCARDIA [None]
